FAERS Safety Report 8337297 (Version 3)
Quarter: 2012Q4

REPORT INFORMATION
  Report Type: 
  Country: US (occurrence: US)
  Receive Date: 20120113
  Receipt Date: 20120919
  Transmission Date: 20130627
  Serious: Yes (Death, Hospitalization, Other)
  Sender: FDA-Public Use
  Company Number: US-GILEAD-2011-0048442

PATIENT
  Age: 38 Year
  Sex: Male

DRUGS (2)
  1. COMPLERA [Suspect]
     Indication: HIV INFECTION
     Dosage: 1 DF, QD
     Dates: start: 20110908, end: 20111231
  2. BACTRIM [Suspect]
     Indication: ANTIFUNGAL PROPHYLAXIS
     Dosage: UNK
     Route: 048
     Dates: start: 20111010, end: 20111219

REACTIONS (12)
  - Atypical pneumonia [Fatal]
  - Immune reconstitution inflammatory syndrome [Fatal]
  - Hypersensitivity [Unknown]
  - Jaundice [Unknown]
  - Night sweats [Unknown]
  - Urinary tract infection [Unknown]
  - Weight decreased [Unknown]
  - Platelet count decreased [Unknown]
  - Myalgia [Unknown]
  - Polyuria [Unknown]
  - Vomiting [Unknown]
  - Fatigue [Unknown]
